FAERS Safety Report 24293201 (Version 1)
Quarter: 2024Q3

REPORT INFORMATION
  Report Type: Spontaneous
  Country: US (occurrence: None)
  Receive Date: 20240906
  Receipt Date: 20240906
  Transmission Date: 20241017
  Serious: No
  Sender: DOMPE FARMACEUTICI
  Company Number: US-FARMAPROD-202308-202312-3651

PATIENT
  Sex: Female

DRUGS (8)
  1. OXERVATE [Suspect]
     Active Substance: CENEGERMIN-BKBJ
     Indication: Keratitis
     Route: 047
     Dates: start: 20231129
  2. CALCIUM [Concomitant]
     Active Substance: CALCIUM
     Dosage: 500(1250)
  3. OMEGA-3-FISH OIL-VITAMIN D3 [Concomitant]
  4. VITAMINS [Concomitant]
     Active Substance: VITAMINS
  5. LORADAMED [Concomitant]
  6. PROGESTERONE [Concomitant]
     Active Substance: PROGESTERONE
  7. ESTRADIOL [Concomitant]
     Active Substance: ESTRADIOL
  8. VITAMIN D3 [Concomitant]
     Active Substance: CHOLECALCIFEROL

REACTIONS (6)
  - Eye pain [Unknown]
  - Eye swelling [Unknown]
  - Lacrimation increased [Unknown]
  - Headache [Unknown]
  - Eye irritation [Unknown]
  - Nausea [Unknown]
